FAERS Safety Report 9740125 (Version 1)
Quarter: 2013Q4

REPORT INFORMATION
  Report Type: Spontaneous
  Country: IT (occurrence: IT)
  Receive Date: 20131209
  Receipt Date: 20131209
  Transmission Date: 20140711
  Serious: Yes (Other)
  Sender: FDA-Public Use
  Company Number: IT-TEVA-448053ISR

PATIENT
  Age: 70 Year
  Sex: Male

DRUGS (3)
  1. DORZOLAMIDE/TIMOLOLO TEVA 20 MG/M L+5MG/ML [Suspect]
     Dosage: 2 GTT DAILY;
     Route: 047
     Dates: start: 20130720, end: 20130805
  2. NORVASC 5 MG [Concomitant]
  3. DELAPRIDE 30 MG+ 2.5 MG [Concomitant]

REACTIONS (2)
  - Exophthalmos [Recovered/Resolved]
  - Eye irritation [Recovered/Resolved]
